FAERS Safety Report 8884697 (Version 2)
Quarter: 2012Q4

REPORT INFORMATION
  Report Type: 
  Country: US (occurrence: US)
  Receive Date: 20121105
  Receipt Date: 20121112
  Transmission Date: 20130627
  Serious: Yes (Disabling, Other)
  Sender: FDA-Public Use
  Company Number: US-AMGEN-USASP2012069637

PATIENT
  Age: 52 Year
  Sex: Female

DRUGS (5)
  1. ENBREL [Suspect]
     Indication: RHEUMATOID ARTHRITIS
     Dosage: 50 mg, qwk
     Dates: start: 20110701
  2. PEGASYS PFS [Concomitant]
     Dosage: 180 mg, qwk
     Dates: start: 201210
  3. NEUROTIN                           /01003001/ [Concomitant]
     Dosage: 1500 mg, qd- (2.5 years)
  4. RIBAVIRIN [Concomitant]
     Dosage: 200mg, 2 tabs twice daily
     Dates: start: 201210
  5. SULFADIAZINE [Concomitant]
     Dosage: 500mg, 3 tabs twice daily

REACTIONS (12)
  - Muscular weakness [Not Recovered/Not Resolved]
  - Eye disorder [Not Recovered/Not Resolved]
  - Asthenia [Not Recovered/Not Resolved]
  - Joint range of motion decreased [Not Recovered/Not Resolved]
  - Wheelchair user [Not Recovered/Not Resolved]
  - Foot deformity [Not Recovered/Not Resolved]
  - Tinnitus [Recovered/Resolved]
  - Fall [Not Recovered/Not Resolved]
  - Tremor [Not Recovered/Not Resolved]
  - Hypoaesthesia [Not Recovered/Not Resolved]
  - Back pain [Not Recovered/Not Resolved]
  - Paraesthesia [Not Recovered/Not Resolved]
